FAERS Safety Report 22396761 (Version 1)
Quarter: 2023Q2

REPORT INFORMATION
  Report Type: Spontaneous
  Country: AU (occurrence: AU)
  Receive Date: 20230601
  Receipt Date: 20230601
  Transmission Date: 20230721
  Serious: Yes (Other)
  Sender: FDA-Public Use
  Company Number: AU-AMGEN-AUSSP2023092276

PATIENT
  Sex: Female

DRUGS (1)
  1. OTEZLA [Suspect]
     Active Substance: APREMILAST
     Indication: Product used for unknown indication
     Dosage: UNK
     Route: 065

REACTIONS (4)
  - Pregnancy on oral contraceptive [Unknown]
  - Maternal exposure during pregnancy [Unknown]
  - Abortion induced [Unknown]
  - Nausea [Unknown]
